FAERS Safety Report 4362089-8 (Version None)
Quarter: 2004Q2

REPORT INFORMATION
  Report Type: 
  Country: None (occurrence: None)
  Receive Date: 20040519
  Receipt Date: 20040519
  Transmission Date: 20050107
  Serious: Yes (Hospitalization)
  Sender: FDA-Public Use
  Company Number: None

PATIENT
  Age: 63 Year
  Sex: Male
  Weight: 75.8 kg

DRUGS (5)
  1. RITUXAN [Suspect]
     Indication: DIFFUSE LARGE B-CELL LYMPHOMA
     Dosage: SEE IMAGE
     Dates: start: 20040505
  2. CYTOXAN [Suspect]
     Dosage: SEE IMAGE
  3. DOXORUBICIN HCL [Concomitant]
     Dosage: SEE IMAGE
  4. VINCRISTINE [Suspect]
     Dosage: SEE IMAGE
  5. PREDNISONE [Suspect]
     Dosage: SEE IMAGE

REACTIONS (2)
  - EAR PAIN [None]
  - NEUTROPENIA [None]
